FAERS Safety Report 16115903 (Version 1)
Quarter: 2019Q1

REPORT INFORMATION
  Report Type: Spontaneous
  Country: IT (occurrence: IT)
  Receive Date: 20190326
  Receipt Date: 20190326
  Transmission Date: 20190418
  Serious: Yes (Other)
  Sender: FDA-Public Use
  Company Number: IT-AUROBINDO-AUR-APL-2019-015470

PATIENT

DRUGS (2)
  1. DELORAZEPAM [Suspect]
     Active Substance: DELORAZEPAM
     Indication: INSOMNIA
     Dosage: 10 MILLILITER, TOTAL
     Route: 048
     Dates: start: 20190311, end: 20190311
  2. LORAZEPAM 2.5MG TABLETS [Suspect]
     Active Substance: LORAZEPAM
     Indication: INSOMNIA
     Dosage: 6 DOSAGE FORM
     Route: 048
     Dates: start: 20190311, end: 20190311

REACTIONS (2)
  - Drug abuse [Recovered/Resolved]
  - Feeling jittery [Recovered/Resolved]

NARRATIVE: CASE EVENT DATE: 20190311
